FAERS Safety Report 11819553 (Version 3)
Quarter: 2016Q1

REPORT INFORMATION
  Report Type: Spontaneous
  Country: US (occurrence: US)
  Receive Date: 20151210
  Receipt Date: 20160322
  Transmission Date: 20160525
  Serious: No
  Sender: FDA-Public Use
  Company Number: US-JNJFOC-20151019793

PATIENT
  Age: 59 Year
  Sex: Female
  Weight: 76.2 kg

DRUGS (2)
  1. STELARA [Suspect]
     Active Substance: USTEKINUMAB
     Indication: PSORIATIC ARTHROPATHY
     Route: 058
     Dates: start: 20151001, end: 20151001
  2. CARVEDILOL. [Concomitant]
     Active Substance: CARVEDILOL
     Indication: HYPERTENSION
     Route: 065

REACTIONS (12)
  - Arthralgia [Recovering/Resolving]
  - Drug ineffective [Unknown]
  - Decreased appetite [Not Recovered/Not Resolved]
  - Dysgeusia [Not Recovered/Not Resolved]
  - Confusional state [Not Recovered/Not Resolved]
  - Peripheral swelling [Not Recovered/Not Resolved]
  - Emotional disorder [Not Recovered/Not Resolved]
  - Drug intolerance [Not Recovered/Not Resolved]
  - Anger [Not Recovered/Not Resolved]
  - Weight increased [Not Recovered/Not Resolved]
  - Erythema [Not Recovered/Not Resolved]
  - Alopecia [Recovering/Resolving]

NARRATIVE: CASE EVENT DATE: 201510
